FAERS Safety Report 20884879 (Version 1)
Quarter: 2022Q2

REPORT INFORMATION
  Report Type: Spontaneous
  Country: RU (occurrence: RU)
  Receive Date: 20220527
  Receipt Date: 20220527
  Transmission Date: 20220721
  Serious: Yes (Hospitalization, Other)
  Sender: FDA-Public Use
  Company Number: RU-BAYER-2022P003099

PATIENT
  Age: 83 Year
  Sex: Male
  Weight: 80 kg

DRUGS (1)
  1. GADOBUTROL [Suspect]
     Active Substance: GADOBUTROL
     Indication: Prostate cancer
     Dosage: 7.5 UNK
     Route: 042
     Dates: start: 20220521

REACTIONS (7)
  - Dizziness [None]
  - Syncope [None]
  - Blood pressure decreased [None]
  - Pulse abnormal [None]
  - Pallor [None]
  - Dyspnoea [None]
  - Arrhythmia [None]

NARRATIVE: CASE EVENT DATE: 20220521
